FAERS Safety Report 9322116 (Version 2)
Quarter: 2013Q2

REPORT INFORMATION
  Report Type: Spontaneous
  Country: US (occurrence: US)
  Receive Date: 20130531
  Receipt Date: 20130626
  Transmission Date: 20140414
  Serious: No
  Sender: FDA-Public Use
  Company Number: US-PFIZER INC-2013165245

PATIENT
  Age: 39 Year
  Sex: Female
  Weight: 113 kg

DRUGS (7)
  1. EFFEXOR [Suspect]
     Indication: BIPOLAR DISORDER
     Dosage: 175 MG, 2X/DAY
     Dates: start: 2002
  2. FLEXERIL [Concomitant]
     Indication: MUSCLE SPASMS
     Dosage: 10 MG, 3X/DAY
  3. TEGRETOL [Concomitant]
     Indication: MOOD ALTERED
     Dosage: 200 MG, 2X/DAY
  4. PROPRANOLOL [Concomitant]
     Indication: TREMOR
     Dosage: 10 MG, 2X/DAY
  5. TRAZODONE [Concomitant]
     Indication: ANXIETY
     Dosage: SPLITTING THE 150MG TABLET IN HALF AS NEEDED
  6. TRAZODONE [Concomitant]
     Indication: SLEEP DISORDER
  7. PRAZOSIN [Concomitant]
     Indication: NIGHTMARE
     Dosage: 1 MG, DAILY

REACTIONS (3)
  - Back pain [Not Recovered/Not Resolved]
  - Intervertebral disc degeneration [Not Recovered/Not Resolved]
  - Spinal column stenosis [Not Recovered/Not Resolved]
